FAERS Safety Report 20090684 (Version 1)
Quarter: 2021Q4

REPORT INFORMATION
  Report Type: Spontaneous
  Country: US (occurrence: US)
  Receive Date: 20211119
  Receipt Date: 20211119
  Transmission Date: 20220303
  Serious: No
  Sender: FDA-Public Use
  Company Number: US-BAYER-2021A248531

PATIENT
  Age: 65 Year
  Sex: Female

DRUGS (4)
  1. ADEMPAS [Suspect]
     Active Substance: RIOCIGUAT
  2. MACITENTAN [Suspect]
     Active Substance: MACITENTAN
     Indication: Pulmonary arterial hypertension
     Dosage: 10 MG, QD
     Route: 048
  3. SELEXIPAG [Suspect]
     Active Substance: SELEXIPAG
     Indication: Pulmonary arterial hypertension
     Dosage: 1600 ?G, BID
     Route: 048
     Dates: start: 2016
  4. OXYGEN [Concomitant]
     Active Substance: OXYGEN

REACTIONS (9)
  - Dyspnoea [None]
  - Headache [None]
  - Decreased appetite [None]
  - Nausea [None]
  - Mobility decreased [None]
  - Disturbance in attention [None]
  - Abdominal distension [None]
  - Peripheral swelling [None]
  - Weight decreased [None]
